FAERS Safety Report 5125610-8 (Version None)
Quarter: 2006Q4

REPORT INFORMATION
  Report Type: 
  Country: None (occurrence: None)
  Receive Date: 20061006
  Receipt Date: 20060926
  Transmission Date: 20070319
  Serious: Yes (Hospitalization)
  Sender: FDA-Public Use
  Company Number: US-2006-005582

PATIENT
  Age: 57 Year
  Sex: Female
  Weight: 68.9 kg

DRUGS (2)
  1. BETASERON [Suspect]
     Indication: RELAPSING-REMITTING MULTIPLE SCLEROSIS
     Dosage: SEE IMAGE
     Route: 058
     Dates: start: 20041206, end: 20060207
  2. BETASERON [Suspect]
     Indication: RELAPSING-REMITTING MULTIPLE SCLEROSIS
     Dosage: SEE IMAGE
     Route: 058
     Dates: start: 20060313

REACTIONS (5)
  - KIDNEY INFECTION [None]
  - NEPHROLITHIASIS [None]
  - PNEUMONIA [None]
  - RENAL NEOPLASM [None]
  - THROMBOSIS [None]
